FAERS Safety Report 12059783 (Version 1)
Quarter: 2016Q1

REPORT INFORMATION
  Report Type: Spontaneous
  Country: US (occurrence: US)
  Receive Date: 20160210
  Receipt Date: 20160210
  Transmission Date: 20160526
  Serious: Yes (Other)
  Sender: FDA-Public Use
  Company Number: US-PFIZER INC-2016068057

PATIENT

DRUGS (2)
  1. CELECOXIB. [Suspect]
     Active Substance: CELECOXIB
     Dosage: UNK
     Dates: start: 2015
  2. CELEBREX [Suspect]
     Active Substance: CELECOXIB
     Dosage: 200 MG, UNK

REACTIONS (5)
  - Gait disturbance [Unknown]
  - Peroneal nerve injury [Unknown]
  - Complex regional pain syndrome [Unknown]
  - Musculoskeletal disorder [Unknown]
  - Femoral nerve injury [Unknown]

NARRATIVE: CASE EVENT DATE: 2015
